FAERS Safety Report 9922728 (Version 3)
Quarter: 2014Q2

REPORT INFORMATION
  Report Type: Report from Study
  Country: ES (occurrence: ES)
  Receive Date: 20140225
  Receipt Date: 20140414
  Transmission Date: 20141212
  Serious: Yes (Death, Hospitalization)
  Sender: FDA-Public Use
  Company Number: ES-CELGENEUS-144-VINCR-14013285

PATIENT
  Age: 68 Year
  Sex: Male

DRUGS (9)
  1. VINCRISTINE [Suspect]
     Indication: PLASMA CELL MYELOMA
     Dosage: 1 MILLIGRAM
     Route: 041
     Dates: start: 20140117
  2. BCNU [Suspect]
     Indication: PLASMA CELL MYELOMA
     Dosage: 30 MILLIGRAM/SQ. METER
     Route: 041
     Dates: start: 20140117
  3. ADRIAMYCIN [Suspect]
     Indication: PLASMA CELL MYELOMA
     Dosage: 40 MILLIGRAM/SQ. METER
     Route: 041
     Dates: start: 20140117
  4. REVLIMID [Suspect]
     Indication: PLASMA CELL MYELOMA
     Route: 048
     Dates: start: 20131223
  5. THALIDOMIDE [Suspect]
     Indication: PLASMA CELL MYELOMA
     Route: 048
     Dates: start: 20131030, end: 20131218
  6. DEXAMETHASONE [Concomitant]
     Indication: PLASMA CELL MYELOMA
     Route: 065
     Dates: start: 201001, end: 201007
  7. DEXAMETHASONE [Concomitant]
     Route: 065
     Dates: start: 20131223
  8. DEXAMETHASONE [Concomitant]
     Dates: start: 20131030, end: 20131218
  9. CYCLOPHOSPHAMIDE [Concomitant]
     Indication: PLASMA CELL MYELOMA
     Route: 065
     Dates: start: 20131030, end: 20131218

REACTIONS (2)
  - Respiratory tract infection [Fatal]
  - Septic shock [Fatal]
